FAERS Safety Report 13325260 (Version 1)
Quarter: 2017Q1

REPORT INFORMATION
  Report Type: Spontaneous
  Country: AU (occurrence: AU)
  Receive Date: 20170310
  Receipt Date: 20170310
  Transmission Date: 20170428
  Serious: Yes (Disabling, Other)
  Sender: FDA-Public Use
  Company Number: AU-009507513-1703AUS003038

PATIENT
  Age: 3 Year
  Sex: Male
  Weight: 19 kg

DRUGS (2)
  1. AVAMYS [Concomitant]
     Active Substance: FLUTICASONE FUROATE
     Route: 045
  2. SINGULAIR [Suspect]
     Active Substance: MONTELUKAST SODIUM
     Dosage: UNK
     Route: 048
     Dates: start: 20140601, end: 20150601

REACTIONS (5)
  - Aggression [Recovered/Resolved]
  - Agitation [Recovered/Resolved]
  - Suicidal ideation [Recovered/Resolved]
  - Tic [Recovered/Resolved]
  - Anger [Recovered/Resolved]

NARRATIVE: CASE EVENT DATE: 20140901
